FAERS Safety Report 9571271 (Version 1)
Quarter: 2013Q4

REPORT INFORMATION
  Report Type: Spontaneous
  Country: FR (occurrence: FR)
  Receive Date: 20131001
  Receipt Date: 20131001
  Transmission Date: 20140711
  Serious: Yes (Other)
  Sender: FDA-Public Use
  Company Number: FR-ASTELLAS-2013EU008251

PATIENT
  Age: 84 Year
  Sex: Female

DRUGS (4)
  1. VESICARE [Suspect]
     Indication: URINARY INCONTINENCE
     Dosage: 5 MG, UID/QD
     Route: 048
     Dates: start: 20130901, end: 20130903
  2. LAMALINE                           /01708901/ [Concomitant]
     Indication: PAIN
     Dosage: UNK
     Route: 065
  3. LYRICA [Concomitant]
     Dosage: UNK
     Route: 065
  4. STILNOX [Concomitant]
     Dosage: UNK
     Route: 065

REACTIONS (9)
  - Constipation [Recovered/Resolved]
  - Gastric disorder [Recovered/Resolved]
  - Disorientation [Recovered/Resolved]
  - Balance disorder [Recovered/Resolved]
  - Dizziness [Recovered/Resolved]
  - Hypoaesthesia [Not Recovered/Not Resolved]
  - Joint swelling [Recovered/Resolved]
  - Local swelling [Recovered/Resolved]
  - Skin exfoliation [Not Recovered/Not Resolved]
